FAERS Safety Report 23593209 (Version 1)
Quarter: 2024Q1

REPORT INFORMATION
  Report Type: Spontaneous
  Country: FR (occurrence: FR)
  Receive Date: 20240304
  Receipt Date: 20240304
  Transmission Date: 20240410
  Serious: Yes (Other)
  Sender: FDA-Public Use
  Company Number: None

PATIENT
  Age: 73 Year
  Sex: Male
  Weight: 102 kg

DRUGS (11)
  1. LEVETIRACETAM [Suspect]
     Active Substance: LEVETIRACETAM
     Indication: Epilepsy
     Dosage: 1 GRAM, QD
     Route: 042
     Dates: start: 20231221, end: 20240104
  2. METRONIDAZOLE [Suspect]
     Active Substance: METRONIDAZOLE
     Indication: Pneumonia
     Dosage: 1.5 GRAM, QD
     Route: 042
     Dates: start: 20231221, end: 20231230
  3. PYRIDOXINE [Suspect]
     Active Substance: PYRIDOXINE
     Indication: Delirium tremens
     Dosage: 500 MILLIGRAM, QD
     Route: 042
     Dates: start: 20231220, end: 20240101
  4. THIAMINE HYDROCHLORIDE [Suspect]
     Active Substance: THIAMINE HYDROCHLORIDE
     Indication: Delirium tremens
     Dosage: 1 GRAM, QD
     Route: 042
     Dates: start: 20231220, end: 20240101
  5. CEFTRIAXONE SODIUM [Suspect]
     Active Substance: CEFTRIAXONE SODIUM
     Indication: Pneumonia
     Dosage: 1 GRAM, QD
     Route: 042
     Dates: start: 20231221, end: 20231230
  6. CLOBAZAM [Concomitant]
     Active Substance: CLOBAZAM
     Dosage: UNK
     Route: 065
  7. SMECTA [Concomitant]
     Active Substance: MONTMORILLONITE
     Dosage: UNK
     Route: 065
  8. BIMATOPROST\TIMOLOL [Concomitant]
     Active Substance: BIMATOPROST\TIMOLOL
     Dosage: UNK
     Route: 065
  9. FEBUXOSTAT [Concomitant]
     Active Substance: FEBUXOSTAT
     Dosage: UNK
     Route: 065
  10. PANTOPRAZOLE [Concomitant]
     Active Substance: PANTOPRAZOLE
     Dosage: UNK
     Route: 065
  11. TINZAPARIN SODIUM [Concomitant]
     Active Substance: TINZAPARIN SODIUM
     Dosage: UNK
     Route: 065

REACTIONS (2)
  - Pruritus [Recovered/Resolved]
  - Rash papular [Recovering/Resolving]

NARRATIVE: CASE EVENT DATE: 20231226
